FAERS Safety Report 9490361 (Version 2)
Quarter: 2015Q3

REPORT INFORMATION
  Report Type: Report from Study
  Country: US (occurrence: US)
  Receive Date: 20130830
  Receipt Date: 20150928
  Transmission Date: 20151125
  Serious: Yes (Other)
  Sender: FDA-Public Use
  Company Number: US-ROCHE-1267321

PATIENT
  Sex: Female
  Weight: 73.09 kg

DRUGS (26)
  1. HERCEPTIN [Suspect]
     Active Substance: TRASTUZUMAB
     Route: 042
  2. HERCEPTIN [Suspect]
     Active Substance: TRASTUZUMAB
     Dosage: LOADING DOSE ON 1ST DAY
     Route: 042
     Dates: start: 20040331
  3. SYNTHROID [Concomitant]
     Active Substance: LEVOTHYROXINE SODIUM
     Route: 048
  4. LEXAPRO [Concomitant]
     Active Substance: ESCITALOPRAM OXALATE
     Route: 048
  5. LEVETIRACETAM. [Concomitant]
     Active Substance: LEVETIRACETAM
     Route: 048
  6. FASLODEX [Concomitant]
     Active Substance: FULVESTRANT
  7. ALOXI [Concomitant]
     Active Substance: PALONOSETRON HYDROCHLORIDE
     Route: 042
  8. HERCEPTIN [Suspect]
     Active Substance: TRASTUZUMAB
     Route: 042
  9. HALAVEN [Concomitant]
     Active Substance: ERIBULIN MESYLATE
     Route: 065
     Dates: start: 201110
  10. HERCEPTIN [Suspect]
     Active Substance: TRASTUZUMAB
     Route: 042
     Dates: start: 20040408
  11. ABRAXANE [Suspect]
     Active Substance: PACLITAXEL
     Indication: BREAST CANCER FEMALE
     Route: 048
     Dates: start: 201111
  12. PROTONIX (OMEPRAZOLE) [Concomitant]
  13. LEXAPRO [Concomitant]
     Active Substance: ESCITALOPRAM OXALATE
     Route: 048
  14. XELODA [Suspect]
     Active Substance: CAPECITABINE
     Indication: BREAST CANCER FEMALE
     Route: 065
  15. PROCRIT [Concomitant]
     Active Substance: ERYTHROPOIETIN
     Dosage: 40000 U
     Route: 058
  16. HERCEPTIN [Suspect]
     Active Substance: TRASTUZUMAB
     Dosage: MAINTENANCE DOSE
     Route: 042
     Dates: start: 20040907
  17. ATIVAN [Concomitant]
     Active Substance: LORAZEPAM
     Route: 048
  18. TAXOTERE [Concomitant]
     Active Substance: DOCETAXEL
  19. GEMFIBROZIL. [Concomitant]
     Active Substance: GEMFIBROZIL
  20. GRANISETRON [Concomitant]
     Active Substance: GRANISETRON
     Route: 042
  21. HALAVEN [Concomitant]
     Active Substance: ERIBULIN MESYLATE
     Route: 065
     Dates: start: 201110
  22. TAXOTERE [Concomitant]
     Active Substance: DOCETAXEL
  23. HERCEPTIN [Suspect]
     Active Substance: TRASTUZUMAB
     Indication: BREAST CANCER
     Route: 042
     Dates: start: 201110
  24. SYNTHROID [Concomitant]
     Active Substance: LEVOTHYROXINE SODIUM
     Route: 048
  25. ARIMIDEX [Concomitant]
     Active Substance: ANASTROZOLE
     Route: 065
  26. ATENOLOL. [Concomitant]
     Active Substance: ATENOLOL
     Route: 048

REACTIONS (5)
  - Disease progression [Unknown]
  - Pain [Unknown]
  - Rhinorrhoea [Unknown]
  - Toxicity to various agents [Unknown]
  - Nausea [Unknown]
